FAERS Safety Report 7534659-7 (Version None)
Quarter: 2011Q2

REPORT INFORMATION
  Report Type: 
  Country: None (occurrence: None)
  Receive Date: 20110609
  Receipt Date: 20110401
  Transmission Date: 20111010
  Serious: Yes (Other)
  Sender: FDA-Public Use
  Company Number: PHHY2011BR01308

PATIENT
  Sex: Female

DRUGS (5)
  1. EXELON [Suspect]
     Dosage: 27MG/15CM2 1 PATCH/24HRS
     Route: 062
  2. VENALOT (TROXERUTIN/COUMARIN) [Concomitant]
     Indication: POOR PERIPHERAL CIRCULATION
     Dosage: 1 TABLET, BID
     Route: 048
     Dates: start: 20010101
  3. EXELON [Suspect]
     Indication: DEMENTIA ALZHEIMER'S TYPE
     Dosage: 9MG/5CM2 1 PATCH/24HRS
     Route: 062
     Dates: start: 20100901
  4. LOSARTAN POTASSIUM [Concomitant]
     Indication: HYPERTENSION
     Dosage: 1 TABLET, BID
     Route: 048
     Dates: start: 20010101
  5. EXELON [Suspect]
     Dosage: 18MG/10CM2 1 PATCH/ 24HRS
     Route: 062

REACTIONS (7)
  - VOMITING [None]
  - DECREASED APPETITE [None]
  - NAUSEA [None]
  - WEIGHT DECREASED [None]
  - DYSPNOEA [None]
  - BLOOD PRESSURE INCREASED [None]
  - PRURITUS [None]
